FAERS Safety Report 9380973 (Version 2)
Quarter: 2013Q3

REPORT INFORMATION
  Report Type: Report from Study
  Country: CO (occurrence: CO)
  Receive Date: 20130703
  Receipt Date: 20130715
  Transmission Date: 20140515
  Serious: Yes (Hospitalization)
  Sender: FDA-Public Use
  Company Number: CO-ROCHE-1244282

PATIENT
  Age: 53 Year
  Sex: Female
  Weight: 55 kg

DRUGS (7)
  1. LUCENTIS [Suspect]
     Indication: PHLEBOTOMY
     Route: 050
     Dates: start: 20130417
  2. LOSARTAN [Concomitant]
  3. CLONIDINE [Concomitant]
  4. ANAPRIL [Concomitant]
  5. RANITIDINE [Concomitant]
  6. OMEPRAZOLE [Concomitant]
  7. FUROSEMIDE [Concomitant]

REACTIONS (2)
  - Vomiting [Recovering/Resolving]
  - Headache [Recovering/Resolving]
